FAERS Safety Report 7700792-X (Version None)
Quarter: 2011Q3

REPORT INFORMATION
  Report Type: 
  Country: None (occurrence: None)
  Receive Date: 20110822
  Receipt Date: 20110811
  Transmission Date: 20111222
  Serious: Yes (Disabling)
  Sender: FDA-Public Use
  Company Number: IT-ROCHE-796157

PATIENT

DRUGS (2)
  1. BEVACIZUMAB [Suspect]
     Route: 065
     Dates: start: 20100310
  2. INTERFERON ALFA [Concomitant]
     Dosage: DOSE:9000000
     Route: 058
     Dates: start: 20100310, end: 20110704

REACTIONS (3)
  - PRURITUS [None]
  - ASTHENIA [None]
  - PYREXIA [None]
